FAERS Safety Report 8606970-X (Version None)
Quarter: 2012Q3

REPORT INFORMATION
  Report Type: 
  Country: None (occurrence: None)
  Receive Date: 20120820
  Receipt Date: 20120814
  Transmission Date: 20120928
  Serious: No
  Sender: FDA-Public Use
  Company Number: US-PFIZER INC-2012199556

PATIENT
  Age: 75 Year
  Sex: Female

DRUGS (5)
  1. DEMEROL [Suspect]
     Dosage: UNK
  2. AZITHROMYCIN [Suspect]
     Dosage: UNK
  3. CODEINE [Suspect]
  4. MORPHINE SULFATE [Suspect]
     Dosage: UNK
  5. ERYTHROMYCIN [Suspect]

REACTIONS (1)
  - DRUG HYPERSENSITIVITY [None]
